FAERS Safety Report 9139861 (Version 1)
Quarter: 2013Q1

REPORT INFORMATION
  Report Type: Spontaneous
  Country: US (occurrence: US)
  Receive Date: 20130305
  Receipt Date: 20130305
  Transmission Date: 20140127
  Serious: No
  Sender: FDA-Public Use
  Company Number: US-ENDO PHARMACEUTICALS INC.-SPLN20120200

PATIENT
  Sex: Female

DRUGS (4)
  1. SUPPRELIN LA [Suspect]
     Indication: PRECOCIOUS PUBERTY
     Route: 058
     Dates: start: 201105, end: 201205
  2. SUPPRELIN LA [Suspect]
     Route: 058
     Dates: start: 201205
  3. SUPPRELIN LA [Suspect]
     Route: 058
     Dates: start: 2010, end: 2011
  4. LUPRON [Concomitant]
     Indication: PRECOCIOUS PUBERTY
     Dosage: UNKNOWN
     Route: 065
     Dates: end: 2010

REACTIONS (4)
  - Upper respiratory tract infection [Not Recovered/Not Resolved]
  - Immunodeficiency [Not Recovered/Not Resolved]
  - Nasopharyngitis [Recovered/Resolved]
  - Pharyngitis streptococcal [Recovered/Resolved]
